FAERS Safety Report 4518029-1 (Version None)
Quarter: 2004Q4

REPORT INFORMATION
  Report Type: 
  Country: None (occurrence: None)
  Receive Date: 20041130
  Receipt Date: 20041111
  Transmission Date: 20050328
  Serious: Yes (Death, Life-Threatening, Hospitalization)
  Sender: FDA-Public Use
  Company Number: US_0409106065

PATIENT
  Age: 62 Year
  Sex: Female
  Weight: 112 kg

DRUGS (14)
  1. GEMCITABINE HYDROCHLORIDE-IV (GEMCITABINE) [Suspect]
     Indication: NON-SMALL CELL LUNG CANCER METASTATIC
     Dosage: 2180 MG OTHER
     Route: 050
     Dates: start: 20040915
  2. CARBOPLATIN [Suspect]
     Indication: NON-SMALL CELL LUNG CANCER METASTATIC
     Dosage: 408 MG OTHER
     Route: 050
     Dates: start: 20040915
  3. SYNTHROID [Concomitant]
  4. CRESTOR [Concomitant]
  5. ZOLOFT [Concomitant]
  6. AVANDIA [Concomitant]
  7. ALTACE [Concomitant]
  8. LASIX [Concomitant]
  9. POTASSIUM [Concomitant]
  10. PLAVIX [Concomitant]
  11. METOPROLOL [Concomitant]
  12. PREVACID [Concomitant]
  13. LORTAB [Concomitant]
  14. DURAGESIC [Concomitant]

REACTIONS (24)
  - ABDOMINAL PAIN UPPER [None]
  - ALANINE AMINOTRANSFERASE INCREASED [None]
  - ASPARTATE AMINOTRANSFERASE INCREASED [None]
  - BACTERIA URINE IDENTIFIED [None]
  - BEDRIDDEN [None]
  - BLOOD ALKALINE PHOSPHATASE INCREASED [None]
  - BLOOD BILIRUBIN INCREASED [None]
  - BLOOD CALCIUM DECREASED [None]
  - BLOOD LACTATE DEHYDROGENASE INCREASED [None]
  - BLOOD PHOSPHORUS INCREASED [None]
  - BLOOD SODIUM DECREASED [None]
  - CONFUSIONAL STATE [None]
  - DISSEMINATED INTRAVASCULAR COAGULATION [None]
  - FATIGUE [None]
  - FLUID INTAKE REDUCED [None]
  - HYPERKALAEMIA [None]
  - HYPOTENSION [None]
  - HYPOVOLAEMIA [None]
  - LETHARGY [None]
  - METABOLIC ENCEPHALOPATHY [None]
  - OLIGURIA [None]
  - PROTEIN URINE PRESENT [None]
  - RENAL FAILURE ACUTE [None]
  - TUMOUR LYSIS SYNDROME [None]
